FAERS Safety Report 13088622 (Version 2)
Quarter: 2017Q1

REPORT INFORMATION
  Report Type: Report from Study
  Country: KR (occurrence: KR)
  Receive Date: 20170105
  Receipt Date: 20170112
  Transmission Date: 20170428
  Serious: Yes (Hospitalization)
  Sender: FDA-Public Use
  Company Number: KR-ROCHE-1872354

PATIENT
  Age: 48 Year
  Sex: Male
  Weight: 58 kg

DRUGS (10)
  1. MORPHINE HYDROCHLORIDE [Concomitant]
     Active Substance: MORPHINE HYDROCHLORIDE
     Indication: PAIN IN EXTREMITY
     Route: 042
     Dates: start: 20161225, end: 20161225
  2. PREGABALIN. [Concomitant]
     Active Substance: PREGABALIN
     Indication: PAIN IN EXTREMITY
     Route: 048
     Dates: start: 20161225
  3. ATEZOLIZUMAB [Suspect]
     Active Substance: ATEZOLIZUMAB
     Indication: COLORECTAL ADENOCARCINOMA
     Dosage: MOST RECENT DOSE OF STUDY DRUG PRIOR TO AE ONSET ON 09/DEC/2016 (840 MG)?MOST RECENT DOSE OF STUDY D
     Route: 042
     Dates: start: 20161209
  4. DOXYCYCLINE. [Concomitant]
     Active Substance: DOXYCYCLINE
     Indication: RASH
     Route: 048
     Dates: start: 20161223
  5. OXYCODON [Concomitant]
     Active Substance: OXYCODONE
     Indication: PAIN IN EXTREMITY
     Route: 042
     Dates: start: 20161225, end: 20161225
  6. BRIMONIDINE TARTRATE/TIMOLOL [Concomitant]
     Indication: GLAUCOMA
     Route: 047
     Dates: start: 20161128
  7. NALOXONE HYDROCHLORIDE/OXYCODONE [Concomitant]
     Indication: PROCTALGIA
     Route: 048
     Dates: start: 20161209, end: 20161221
  8. ADVIL [Concomitant]
     Active Substance: IBUPROFEN
     Indication: PROCTALGIA
     Route: 048
     Dates: start: 20161201, end: 20161209
  9. NALOXONE HYDROCHLORIDE/OXYCODONE [Concomitant]
     Indication: PAIN IN EXTREMITY
     Route: 048
     Dates: start: 20161225
  10. COBIMETINIB [Suspect]
     Active Substance: COBIMETINIB
     Indication: COLORECTAL ADENOCARCINOMA
     Dosage: MOST RECENT DOSE OF STUDY DRUG PRIOR TO AE ONSET ON 23/DEC/2016 (60 MG)
     Route: 048
     Dates: start: 20161209

REACTIONS (3)
  - Influenza like illness [Recovered/Resolved]
  - Detachment of retinal pigment epithelium [Recovered/Resolved]
  - Guillain-Barre syndrome [Recovered/Resolved]

NARRATIVE: CASE EVENT DATE: 20161223
